FAERS Safety Report 6903217-7 (Version None)
Quarter: 2010Q3

REPORT INFORMATION
  Report Type: 
  Country: None (occurrence: None)
  Receive Date: 20100803
  Receipt Date: 20080630
  Transmission Date: 20110219
  Serious: No
  Sender: FDA-Public Use
  Company Number: US-PFIZER INC-2008044928

PATIENT
  Sex: Female

DRUGS (8)
  1. LYRICA [Suspect]
     Indication: FIBROMYALGIA
     Dates: start: 20080517
  2. OTHER GYNECOLOGICALS [Suspect]
  3. ZETIA [Concomitant]
  4. LIPITOR [Concomitant]
  5. TRAZODONE [Concomitant]
  6. VITAMIN TAB [Concomitant]
  7. GLUCOSAMINE [Concomitant]
  8. OPHTHALMOLOGICALS [Concomitant]

REACTIONS (1)
  - INTRAOCULAR PRESSURE INCREASED [None]
